FAERS Safety Report 5381717-1 (Version None)
Quarter: 2007Q3

REPORT INFORMATION
  Report Type: 
  Country: None (occurrence: None)
  Receive Date: 20070709
  Receipt Date: 20070627
  Transmission Date: 20080115
  Serious: Yes (Other)
  Sender: FDA-Public Use
  Company Number: PHBS2007JP11013

PATIENT
  Age: 7 Year
  Sex: Male

DRUGS (2)
  1. METHYLPREDNISOLONE [Suspect]
     Indication: NEPHROTIC SYNDROME
     Route: 065
  2. CYCLOSPORINE [Suspect]
     Indication: NEPHROTIC SYNDROME
     Route: 065

REACTIONS (3)
  - CHRONIC SINUSITIS [None]
  - CONCOMITANT DISEASE AGGRAVATED [None]
  - NEPHROTIC SYNDROME [None]
